FAERS Safety Report 7544215-2 (Version None)
Quarter: 2011Q2

REPORT INFORMATION
  Report Type: 
  Country: None (occurrence: None)
  Receive Date: 20110613
  Receipt Date: 20060728
  Transmission Date: 20111010
  Serious: Yes (Hospitalization, Other)
  Sender: FDA-Public Use
  Company Number: PHNR2005AU01393

PATIENT
  Sex: Male

DRUGS (3)
  1. CLOZAPINE [Suspect]
     Dosage: 0 - 475 MG/DAY
     Route: 048
     Dates: start: 19980323, end: 20050831
  2. CLOZAPINE [Suspect]
     Dosage: 12.5 MG DAILY,
     Route: 048
     Dates: start: 20060801
  3. CLOZAPINE [Suspect]
     Dosage: 12.5 - 150MG DAILY
     Route: 048
     Dates: start: 20050903, end: 20051201

REACTIONS (4)
  - EMOTIONAL DISTRESS [None]
  - HEART RATE IRREGULAR [None]
  - BUNDLE BRANCH BLOCK RIGHT [None]
  - CHEST PAIN [None]
